FAERS Safety Report 17103638 (Version 1)
Quarter: 2019Q4

REPORT INFORMATION
  Report Type: Spontaneous
  Country: NL (occurrence: NL)
  Receive Date: 20191203
  Receipt Date: 20191203
  Transmission Date: 20200122
  Serious: Yes (Hospitalization, Other)
  Sender: FDA-Public Use
  Company Number: NL-AUROBINDO-AUR-APL-2019-076183

PATIENT
  Age: 55 Year
  Sex: Female
  Weight: 84 kg

DRUGS (2)
  1. IBUPROFEN 400 MG CAPSULES, SOFT [Suspect]
     Active Substance: IBUPROFEN
     Indication: NECK PAIN
     Dosage: 400 MILLIGRAM
     Route: 048
     Dates: start: 20191107, end: 20191107
  2. IBUPROFEN 400 MG CAPSULES, SOFT [Suspect]
     Active Substance: IBUPROFEN
     Indication: HEADACHE

REACTIONS (2)
  - Rash [Recovered/Resolved]
  - Anaphylactic shock [Recovered/Resolved]

NARRATIVE: CASE EVENT DATE: 20191107
